FAERS Safety Report 25276578 (Version 1)
Quarter: 2025Q2

REPORT INFORMATION
  Report Type: Spontaneous
  Country: US (occurrence: US)
  Receive Date: 20250507
  Receipt Date: 20250507
  Transmission Date: 20250716
  Serious: Yes (Other)
  Sender: AMGEN
  Company Number: US-AMGEN-USASP2025086957

PATIENT

DRUGS (2)
  1. PREDNISONE [Suspect]
     Active Substance: PREDNISONE
     Indication: Chronic graft versus host disease
     Route: 065
  2. IMIQUIMOD [Concomitant]
     Active Substance: IMIQUIMOD
     Indication: Leukoplakia
     Route: 061

REACTIONS (13)
  - Leukoplakia oral [Unknown]
  - Chronic graft versus host disease oral [Unknown]
  - Gastrointestinal ulcer [Unknown]
  - Fatigue [Unknown]
  - Headache [Unknown]
  - Chills [Unknown]
  - Hypogeusia [Unknown]
  - Oral lichen planus [Unknown]
  - Oral pain [Unknown]
  - Oral hyperaesthesia [Unknown]
  - Oropharyngeal pain [Unknown]
  - Mouth ulceration [Unknown]
  - Off label use [Unknown]
